FAERS Safety Report 24336841 (Version 1)
Quarter: 2024Q3

REPORT INFORMATION
  Report Type: Spontaneous
  Country: JP (occurrence: JP)
  Receive Date: 20240919
  Receipt Date: 20240919
  Transmission Date: 20241017
  Serious: Yes (Hospitalization, Other)
  Sender: BRISTOL MYERS SQUIBB
  Company Number: JP-BRISTOL-MYERS SQUIBB COMPANY-2024-146015

PATIENT
  Age: 5 Decade
  Sex: Female

DRUGS (2)
  1. YERVOY [Suspect]
     Active Substance: IPILIMUMAB
     Indication: Colon cancer
  2. OPDIVO [Suspect]
     Active Substance: NIVOLUMAB
     Indication: Colon cancer

REACTIONS (12)
  - Pruritus [Unknown]
  - Headache [Unknown]
  - Malaise [Unknown]
  - Hypopituitarism [Unknown]
  - Type 1 diabetes mellitus [Unknown]
  - Immune-mediated hepatic disorder [Unknown]
  - Immune-mediated enterocolitis [Unknown]
  - Splenic infarction [Unknown]
  - Renal infarct [Unknown]
  - Blood thyroid stimulating hormone decreased [Unknown]
  - Blood corticotrophin decreased [Unknown]
  - Diabetic ketoacidosis [Unknown]
